FAERS Safety Report 13540279 (Version 1)
Quarter: 2017Q2

REPORT INFORMATION
  Report Type: Spontaneous
  Country: CA (occurrence: CA)
  Receive Date: 20170512
  Receipt Date: 20170512
  Transmission Date: 20170830
  Serious: Yes (Hospitalization)
  Sender: FDA-Public Use
  Company Number: CA-ORPHAN EUROPE-2020639

PATIENT
  Sex: Female
  Weight: 5.4 kg

DRUGS (2)
  1. CARBAGLU [Suspect]
     Active Substance: CARGLUMIC ACID
     Indication: HYPERAMMONAEMIA
     Route: 050
     Dates: start: 201605
  2. CARBAGLU [Suspect]
     Active Substance: CARGLUMIC ACID
     Route: 048

REACTIONS (3)
  - Vomiting [Unknown]
  - Dyspnoea [Unknown]
  - Device occlusion [Recovered/Resolved]
